FAERS Safety Report 14680957 (Version 1)
Quarter: 2018Q1

REPORT INFORMATION
  Report Type: Spontaneous
  Country: US (occurrence: US)
  Receive Date: 20180324
  Receipt Date: 20180324
  Transmission Date: 20180509
  Serious: Yes (Hospitalization)
  Sender: FDA-Public Use
  Company Number: None

PATIENT
  Age: 47 Year
  Sex: Female
  Weight: 93.8 kg

DRUGS (3)
  1. EVEROLIMUS / PLACEBO - S1207 [Concomitant]
  2. ASPIRIN. [Suspect]
     Active Substance: ASPIRIN
     Dates: end: 20180129
  3. ANASTROZOLE. [Concomitant]
     Active Substance: ANASTROZOLE

REACTIONS (2)
  - Uterine leiomyoma [None]
  - Hysterectomy [None]

NARRATIVE: CASE EVENT DATE: 20180129
